FAERS Safety Report 12244469 (Version 1)
Quarter: 2016Q2

REPORT INFORMATION
  Report Type: Spontaneous
  Country: US (occurrence: US)
  Receive Date: 20160407
  Receipt Date: 20160407
  Transmission Date: 20160815
  Serious: No
  Sender: FDA-Public Use
  Company Number: US-B.I. PHARMACEUTICALS,INC./RIDGEFIELD-2016-BI-18865BP

PATIENT
  Age: 59 Year
  Sex: Male
  Weight: 96.16 kg

DRUGS (3)
  1. METFORMIN [Concomitant]
     Active Substance: METFORMIN HYDROCHLORIDE
     Indication: DIABETES MELLITUS
     Dosage: 2000 MG
     Route: 048
     Dates: start: 201602
  2. JARDIANCE [Suspect]
     Active Substance: EMPAGLIFLOZIN
     Indication: TYPE 2 DIABETES MELLITUS
     Dosage: 25 MG
     Route: 048
     Dates: start: 201602
  3. TOUJEO [Concomitant]
     Active Substance: INSULIN GLARGINE
     Indication: DIABETES MELLITUS
     Dosage: 28 U
     Route: 058
     Dates: start: 201602

REACTIONS (5)
  - Pain [Not Recovered/Not Resolved]
  - Memory impairment [Recovered/Resolved]
  - Weight decreased [Not Recovered/Not Resolved]
  - Blood glucose increased [Recovered/Resolved]
  - Somnolence [Recovered/Resolved]

NARRATIVE: CASE EVENT DATE: 20160323
